FAERS Safety Report 18609727 (Version 2)
Quarter: 2021Q1

REPORT INFORMATION
  Report Type: Report from Study
  Country: US (occurrence: US)
  Receive Date: 20201214
  Receipt Date: 20210309
  Transmission Date: 20210419
  Serious: Yes (Other)
  Sender: FDA-Public Use
  Company Number: US-SA-2020SA356455

PATIENT
  Sex: Male

DRUGS (1)
  1. ALIROCUMAB [Suspect]
     Active Substance: ALIROCUMAB
     Indication: HYPERCHOLESTEROLAEMIA
     Dosage: 1 DF, QOW
     Route: 058
     Dates: start: 20201001, end: 20201201

REACTIONS (3)
  - Muscle tightness [Unknown]
  - Muscle rupture [Unknown]
  - Muscle contusion [Unknown]

NARRATIVE: CASE EVENT DATE: 202010
